FAERS Safety Report 14071377 (Version 1)
Quarter: 2017Q4

REPORT INFORMATION
  Report Type: Spontaneous
  Country: LB (occurrence: LB)
  Receive Date: 20171011
  Receipt Date: 20171011
  Transmission Date: 20180321
  Serious: Yes (Hospitalization, Other)
  Sender: FDA-Public Use
  Company Number: PHHY2017LB145179

PATIENT
  Age: 79 Year
  Sex: Female

DRUGS (6)
  1. CONCOR COR [Concomitant]
     Active Substance: BISOPROLOL FUMARATE
     Indication: PRODUCT USED FOR UNKNOWN INDICATION
     Dosage: 2.5 MG, UNK
     Route: 065
  2. VOTRIENT [Suspect]
     Active Substance: PAZOPANIB HYDROCHLORIDE
     Indication: PRODUCT USED FOR UNKNOWN INDICATION
     Dosage: 2 DF, QD
     Route: 065
  3. VOTRIENT [Suspect]
     Active Substance: PAZOPANIB HYDROCHLORIDE
     Dosage: 1 DF, (EVERY 4 DAYS) UNK
     Route: 065
  4. VOTRIENT [Suspect]
     Active Substance: PAZOPANIB HYDROCHLORIDE
     Dosage: 1 DF, (EVERY 2 DAYS) UNK
     Route: 065
  5. PARIET [Concomitant]
     Active Substance: RABEPRAZOLE SODIUM
     Indication: PRODUCT USED FOR UNKNOWN INDICATION
     Route: 065
  6. VOTRIENT [Suspect]
     Active Substance: PAZOPANIB HYDROCHLORIDE
     Dosage: 1 DF, (EVERY 4 DAYS) UNK
     Route: 065

REACTIONS (9)
  - Pain [Unknown]
  - Fatigue [Unknown]
  - Urinary tract infection [Not Recovered/Not Resolved]
  - Nausea [Unknown]
  - Abdominal pain lower [Unknown]
  - Depressed mood [Unknown]
  - Blood glucose increased [Not Recovered/Not Resolved]
  - Dependence [Unknown]
  - Diarrhoea [Recovered/Resolved]
